FAERS Safety Report 20993534 (Version 1)
Quarter: 2022Q2

REPORT INFORMATION
  Report Type: Spontaneous
  Country: US (occurrence: US)
  Receive Date: 20220622
  Receipt Date: 20220622
  Transmission Date: 20220720
  Serious: No
  Sender: FDA-Public Use
  Company Number: US-Ipsen Biopharmaceuticals, Inc.-2022-17426

PATIENT
  Sex: Female

DRUGS (23)
  1. SOMATULINE DEPOT [Suspect]
     Active Substance: LANREOTIDE ACETATE
     Indication: Acromegaly
     Dosage: 60 MG/ 0.2 ML
     Route: 058
     Dates: start: 2013
  2. TRAMADOL HCL [Concomitant]
     Active Substance: TRAMADOL HYDROCHLORIDE
  3. CALCITRIOL [Concomitant]
     Active Substance: CALCITRIOL
  4. CALTRATE+D [Concomitant]
     Dosage: 600-800
  5. NORCO [Concomitant]
     Active Substance: ACETAMINOPHEN\HYDROCODONE BITARTRATE
  6. AZITHROMYCIN [Concomitant]
     Active Substance: AZITHROMYCIN
  7. FLUCONAZOLE [Concomitant]
     Active Substance: FLUCONAZOLE
  8. PERCOCET [Concomitant]
     Active Substance: ACETAMINOPHEN\OXYCODONE HYDROCHLORIDE
     Dosage: TAB 10-325 MG
  9. BACTRIM [Concomitant]
     Active Substance: SULFAMETHOXAZOLE\TRIMETHOPRIM
  10. OMEPRAZOLE [Concomitant]
     Active Substance: OMEPRAZOLE
  11. ACETAMINOPHEN\HYDROCODONE [Concomitant]
     Active Substance: ACETAMINOPHEN\HYDROCODONE
  12. VESICARE [Concomitant]
     Active Substance: SOLIFENACIN SUCCINATE
  13. DIOVAN [Concomitant]
     Active Substance: VALSARTAN
  14. CLOBETASOL PROPIONATE [Concomitant]
     Active Substance: CLOBETASOL PROPIONATE
  15. NYSTATIN [Concomitant]
     Active Substance: NYSTATIN
  16. PHENAZOPYRIDINE HCL [Concomitant]
     Active Substance: PHENAZOPYRIDINE HYDROCHLORIDE
  17. SULFAMETHOXAZOLE/TRIMETHO [Concomitant]
  18. DIOVAN HCT [Concomitant]
     Active Substance: HYDROCHLOROTHIAZIDE\VALSARTAN
  19. COREG [Concomitant]
     Active Substance: CARVEDILOL
  20. LEXAPRO [Concomitant]
     Active Substance: ESCITALOPRAM OXALATE
  21. ATORVASTATIN CALCIUM [Concomitant]
     Active Substance: ATORVASTATIN CALCIUM
  22. TRICOR [Concomitant]
     Active Substance: FENOFIBRATE
  23. AMIODARONE HYDROCHLORIDE [Concomitant]
     Active Substance: AMIODARONE HYDROCHLORIDE

REACTIONS (2)
  - Foot deformity [Unknown]
  - Drug ineffective [Unknown]
